FAERS Safety Report 23342706 (Version 1)
Quarter: 2023Q4

REPORT INFORMATION
  Report Type: Spontaneous
  Country: PT (occurrence: PT)
  Receive Date: 20231227
  Receipt Date: 20231227
  Transmission Date: 20240110
  Serious: Yes (Death, Other)
  Sender: FDA-Public Use
  Company Number: None

PATIENT
  Age: 72 Year
  Sex: Male

DRUGS (9)
  1. QUETIAPINE [Suspect]
     Active Substance: QUETIAPINE
     Indication: Confusional state
     Dosage: 125 MILLIGRAM, QD (25 MG AT BREAKFAST AND 100 MG AT BEDTIME)
     Route: 048
     Dates: start: 20230912
  2. RISPERIDONE [Suspect]
     Active Substance: RISPERIDONE
     Indication: Confusional state
     Dosage: 2 MILLIGRAM, QD (0.5MG IN THE MORNING + 1.5MG AT NIGHT)
     Route: 048
     Dates: start: 20230912, end: 20231007
  3. DIAZEPAM [Concomitant]
     Active Substance: DIAZEPAM
     Dosage: 10 MILLIGRAM, BID
     Route: 030
     Dates: start: 20230912
  4. ACETAMINOPHEN [Concomitant]
     Active Substance: ACETAMINOPHEN
     Dosage: 1000 MILLIGRAM (SOS)
     Route: 065
  5. Tiamina [Concomitant]
     Dosage: 100 MILLIGRAM
     Route: 048
     Dates: start: 20230912
  6. METHIMAZOLE [Concomitant]
     Active Substance: METHIMAZOLE
     Dosage: 5 MILLIGRAM, QD
     Route: 048
  7. METAMIZOLE MAGNESIUM [Concomitant]
     Active Substance: METAMIZOLE MAGNESIUM
     Dosage: 2000 MILLIGRAM (SOS)
     Route: 065
  8. PANTOPRAZOLE SODIUM [Concomitant]
     Active Substance: PANTOPRAZOLE SODIUM
     Dosage: 40 MILLIGRAM, QD
     Route: 048
  9. HALOPERIDOL [Concomitant]
     Active Substance: HALOPERIDOL
     Dosage: IF HE CANNOT TOLERATE ORAL ADMINISTRATION, IN SOS HALOPERIDOL 5 MG IM 8 /8H
     Route: 030

REACTIONS (9)
  - Neuroleptic malignant syndrome [Fatal]
  - Renal impairment [Unknown]
  - Thyrotoxic crisis [Unknown]
  - Cardio-respiratory arrest [Unknown]
  - Neutrophilia [Unknown]
  - Nosocomial infection [Unknown]
  - Metabolic acidosis [Unknown]
  - Bradycardia [Unknown]
  - Fatigue [Unknown]

NARRATIVE: CASE EVENT DATE: 20231006
